FAERS Safety Report 15945220 (Version 1)
Quarter: 2019Q1

REPORT INFORMATION
  Report Type: Spontaneous
  Country: IT (occurrence: IT)
  Receive Date: 20190211
  Receipt Date: 20190211
  Transmission Date: 20190417
  Serious: Yes (Hospitalization, Other)
  Sender: FDA-Public Use
  Company Number: IT-SA-2019SA003524

PATIENT
  Age: 16 Year
  Sex: Male

DRUGS (3)
  1. OKITASK [Suspect]
     Active Substance: KETOPROFEN LYSINE
     Indication: DRUG ABUSE
     Dosage: 80 MG, TOTAL
     Route: 048
     Dates: start: 20181215, end: 20181215
  2. MUSCORIL [Suspect]
     Active Substance: THIOCOLCHICOSIDE
     Indication: DRUG ABUSE
     Dosage: 8 MG, TOTAL
     Route: 048
     Dates: start: 20181215, end: 20181215
  3. DULCOLAX NOS [Suspect]
     Active Substance: BISACODYL OR DOCUSATE SODIUM
     Indication: DRUG ABUSE
     Dosage: 20 MG, TOTAL
     Route: 048
     Dates: start: 20181215, end: 20181215

REACTIONS (2)
  - Hyperventilation [Recovering/Resolving]
  - Shock [Recovering/Resolving]

NARRATIVE: CASE EVENT DATE: 20181215
